FAERS Safety Report 10330990 (Version 1)
Quarter: 2014Q3

REPORT INFORMATION
  Report Type: Spontaneous
  Country: US (occurrence: US)
  Receive Date: 20140722
  Receipt Date: 20140722
  Transmission Date: 20150326
  Serious: Yes (Other)
  Sender: FDA-Public Use
  Company Number: US-AMGEN-USASP2014054256

PATIENT
  Age: 47 Year
  Sex: Male

DRUGS (1)
  1. ENBREL [Suspect]
     Active Substance: ETANERCEPT
     Indication: RHEUMATOID ARTHRITIS
     Dosage: 50 MG, QWK
     Route: 065
     Dates: start: 2007, end: 20140212

REACTIONS (6)
  - Muscular weakness [Unknown]
  - Eye disorder [Unknown]
  - Hypoaesthesia [Unknown]
  - Herpes zoster [Recovered/Resolved]
  - Nervous system disorder [Unknown]
  - Vasculitis cerebral [Unknown]

NARRATIVE: CASE EVENT DATE: 201310
